FAERS Safety Report 7603201-4 (Version None)
Quarter: 2011Q3

REPORT INFORMATION
  Report Type: 
  Country: None (occurrence: None)
  Receive Date: 20110701
  Receipt Date: 20110617
  Transmission Date: 20111222
  Serious: Yes (Congenital Anomaly, Other)
  Sender: FDA-Public Use
  Company Number: 2011MA007992

PATIENT
  Sex: Male
  Weight: 3.44 kg

DRUGS (4)
  1. FERROUS SUL ELX [Suspect]
     Indication: MATERNAL EXPOSURE DURING PREGNANCY
     Dosage: 200 MG;   ; TRPL
     Route: 064
     Dates: start: 20090608, end: 20090831
  2. MMRVAXPRO (NO PREF. NAME) [Suspect]
     Indication: MATERNAL EXPOSURE DURING PREGNANCY
     Dosage: ; TRPL
     Route: 064
     Dates: start: 20081112, end: 20081112
  3. GYNO-PEVARYL (ECONAZOLE NITRATE) [Suspect]
     Indication: MATERNAL EXPOSURE DURING PREGNANCY
     Dosage: 150 MG;    ;TRPL
     Route: 064
     Dates: start: 20090522, end: 20090522
  4. CEPHALEXIN [Suspect]
     Indication: MATERNAL EXPOSURE DURING PREGNANCY
     Dosage: 500 MG;     ;TRPL
     Route: 064
     Dates: start: 20090226, end: 20090301

REACTIONS (6)
  - THELITIS [None]
  - BRONCHIOLITIS [None]
  - TRANSIENT TACHYPNOEA OF THE NEWBORN [None]
  - BREECH PRESENTATION [None]
  - HIP DYSPLASIA [None]
  - MATERNAL DRUGS AFFECTING FOETUS [None]
